FAERS Safety Report 12681655 (Version 1)
Quarter: 2016Q3

REPORT INFORMATION
  Report Type: Spontaneous
  Country: US (occurrence: US)
  Receive Date: 20160824
  Receipt Date: 20160824
  Transmission Date: 20161109
  Serious: No
  Sender: FDA-Public Use
  Company Number: US-KVK-TECH, INC-1056710

PATIENT
  Age: 51 Year
  Sex: Female

DRUGS (1)
  1. BENZPHETAMINE HYDROCHLORIDE. [Suspect]
     Active Substance: BENZPHETAMINE HYDROCHLORIDE
     Indication: MEDICAL DIET
     Route: 048
     Dates: start: 20160627

REACTIONS (1)
  - Drug ineffective [Not Recovered/Not Resolved]

NARRATIVE: CASE EVENT DATE: 20160711
